FAERS Safety Report 25982594 (Version 1)
Quarter: 2025Q4

REPORT INFORMATION
  Report Type: Spontaneous
  Country: CH (occurrence: CH)
  Receive Date: 20251031
  Receipt Date: 20251031
  Transmission Date: 20260117
  Serious: Yes (Other)
  Sender: PADAGIS
  Company Number: CH-PADAGIS-2025PAD01369

PATIENT

DRUGS (2)
  1. CLOBETASOL PROPIONATE [Suspect]
     Active Substance: CLOBETASOL PROPIONATE
     Indication: Psoriasis
     Dosage: APPLIED ON THE WHOLE SKIN 3 TIMES PER WEEK
     Route: 061
  2. CYCLOSPORINE [Concomitant]
     Active Substance: CYCLOSPORINE
     Indication: Psoriasis
     Dosage: UNK
     Route: 048

REACTIONS (3)
  - Hemianopia heteronymous [Unknown]
  - Glaucoma [Recovered/Resolved]
  - Product use issue [Unknown]
